FAERS Safety Report 5906084-3 (Version None)
Quarter: 2008Q4

REPORT INFORMATION
  Report Type: 
  Country: None (occurrence: None)
  Receive Date: 20081002
  Receipt Date: 20080924
  Transmission Date: 20090506
  Serious: Yes (Other)
  Sender: FDA-Public Use
  Company Number: PHEH2005US09160

PATIENT
  Sex: Male
  Weight: 83.9 kg

DRUGS (16)
  1. ZOMETA [Suspect]
     Indication: HYPERCALCAEMIA OF MALIGNANCY
     Dosage: UNK,UNK
     Route: 042
     Dates: start: 20040801
  2. DEPAKOTE [Concomitant]
  3. KLONOPIN [Concomitant]
  4. PREDNISONE [Concomitant]
     Indication: SARCOIDOSIS
     Dosage: 30 MG, BID
     Route: 048
  5. BACTRIM DS [Concomitant]
     Indication: ANTIFUNGAL PROPHYLAXIS
     Dosage: 1 TAB TID
     Route: 048
  6. PREVACID [Concomitant]
     Dosage: 30 MG, QD
     Route: 048
  7. CYMBALTA [Concomitant]
  8. LEXAPRO [Concomitant]
  9. XANAX [Concomitant]
  10. BUSPAR [Concomitant]
  11. SERZONE [Concomitant]
  12. LORAZEPAM [Concomitant]
  13. WELLBUTRIN SR [Concomitant]
  14. NEURONTIN [Concomitant]
  15. REMERON [Concomitant]
  16. SEROQUEL [Concomitant]

REACTIONS (16)
  - AVOIDANT PERSONALITY DISORDER [None]
  - BLOOD TESTOSTERONE DECREASED [None]
  - BONE DISORDER [None]
  - FALL [None]
  - FIBULA FRACTURE [None]
  - GINGIVAL EROSION [None]
  - HYPOGONADISM [None]
  - MEDICAL DEVICE REMOVAL [None]
  - OSTEONECROSIS [None]
  - PAIN IN JAW [None]
  - PANIC DISORDER [None]
  - SKIN LACERATION [None]
  - SLEEP DISORDER [None]
  - SOCIAL PHOBIA [None]
  - SURGERY [None]
  - TOOTHACHE [None]
